FAERS Safety Report 5100746-6 (Version None)
Quarter: 2006Q3

REPORT INFORMATION
  Report Type: 
  Country: None (occurrence: None)
  Receive Date: 20060731
  Receipt Date: 20060615
  Transmission Date: 20061208
  Serious: No
  Sender: FDA-Public Use
  Company Number: 2006PV015670

PATIENT
  Age: 63 Year
  Sex: Female
  Weight: 93.8946 kg

DRUGS (5)
  1. BYETTA [Suspect]
     Indication: DIABETES MELLITUS NON-INSULIN-DEPENDENT
     Dosage: SEE IMAGE
     Route: 058
     Dates: start: 20060401, end: 20060501
  2. BYETTA [Suspect]
     Indication: DIABETES MELLITUS NON-INSULIN-DEPENDENT
     Dosage: SEE IMAGE
     Route: 058
     Dates: start: 20060501, end: 20060609
  3. METFORMIN HCL [Concomitant]
  4. AMARYL [Concomitant]
  5. HUMALOG [Concomitant]

REACTIONS (5)
  - BLOOD GLUCOSE INCREASED [None]
  - FEELING JITTERY [None]
  - GASTROOESOPHAGEAL REFLUX DISEASE [None]
  - NAUSEA [None]
  - WEIGHT DECREASED [None]
